FAERS Safety Report 17860757 (Version 2)
Quarter: 2020Q2

REPORT INFORMATION
  Report Type: Spontaneous
  Country: US (occurrence: US)
  Receive Date: 20200604
  Receipt Date: 20200625
  Transmission Date: 20200714
  Serious: No
  Sender: FDA-Public Use
  Company Number: US-VERTEX PHARMACEUTICALS-2020-011948

PATIENT
  Sex: Male
  Weight: 73 kg

DRUGS (22)
  1. GABAPENTIN. [Concomitant]
     Active Substance: GABAPENTIN
     Dosage: 100 MG
  2. MAGNESIUM [Concomitant]
     Active Substance: MAGNESIUM
     Dosage: 250 MG
  3. TRIKAFTA [Suspect]
     Active Substance: ELEXACAFTOR\IVACAFTOR\TEZACAFTOR
     Indication: CYSTIC FIBROSIS
     Dosage: 2 ORANGE TABLET (100 MG ELEXA/ 50 MG TEZA/ 75 MG IVACA) AM; 1 BLUE TABLET (150MG IVACAFTOR) PM
     Route: 048
  4. L-CARNITINE [LEVOCARNITINE] [Concomitant]
     Dosage: 1000-10/15 LIQUID
  5. PULMOZYME [Concomitant]
     Active Substance: DORNASE ALFA
     Dosage: 1MG/ML SOLUTION
  6. ZENPEP [Concomitant]
     Active Substance: PANCRELIPASE AMYLASE\PANCRELIPASE LIPASE\PANCRELIPASE PROTEASE
     Dosage: 25-79-105K
  7. FLONASE ALLERGY RELIEF [Concomitant]
     Active Substance: FLUTICASONE PROPIONATE
  8. L-ARGININE [ARGININE] [Concomitant]
     Active Substance: ARGININE
     Dosage: 1000 MG
  9. CLARITIN ALLERGIC [Concomitant]
     Active Substance: OXYMETAZOLINE HYDROCHLORIDE
     Dosage: 10 MG
  10. TOBI [Concomitant]
     Active Substance: TOBRAMYCIN
     Dosage: 300 MG/5 ML
  11. SELENIUM [Concomitant]
     Active Substance: SELENIUM
     Dosage: 100 MICROGRAM
  12. AZELASTINE HCL [Concomitant]
     Active Substance: AZELASTINE HYDROCHLORIDE
     Dosage: 205.5 MCG SPRAY/PUMP
  13. VITAMIN D2 [Concomitant]
     Active Substance: ERGOCALCIFEROL
     Dosage: 2000 UNIT
  14. DULERA [Concomitant]
     Active Substance: FORMOTEROL FUMARATE DIHYDRATE\MOMETASONE FUROATE
     Dosage: 100-5 MCG HFA AER AD
  15. CAYSTON [Concomitant]
     Active Substance: AZTREONAM
     Dosage: 75 MG/ML
  16. VITAMIN B12 [Concomitant]
     Active Substance: CYANOCOBALAMIN
     Dosage: 2500 MICROGRAM
  17. CIPRO [Concomitant]
     Active Substance: CIPROFLOXACIN HYDROCHLORIDE
     Dosage: 250 MG
  18. FISH OIL [Concomitant]
     Active Substance: FISH OIL
     Dosage: 100-150 MG
  19. CALCIUM [Concomitant]
     Active Substance: CALCIUM
     Dosage: 500(1250)
  20. L-GLUTAMINE [GLUTAMIC ACID] [Concomitant]
     Dosage: 500 MG
  21. ZINC. [Concomitant]
     Active Substance: ZINC
     Dosage: 50 MG
  22. BOOST HIGH PROTEIN [Concomitant]

REACTIONS (1)
  - Chest pain [Unknown]

NARRATIVE: CASE EVENT DATE: 2020
